FAERS Safety Report 6059976-1 (Version None)
Quarter: 2009Q1

REPORT INFORMATION
  Report Type: 
  Country: None (occurrence: None)
  Receive Date: 20090130
  Receipt Date: 20090130
  Transmission Date: 20090719
  Serious: Yes (Other)
  Sender: FDA-Public Use
  Company Number: US-B.I. PHARMACEUTICALS,INC./RIDGEFIELD-2008-BP-16708BP

PATIENT
  Sex: Female

DRUGS (11)
  1. SPIRIVA [Suspect]
     Indication: EMPHYSEMA
     Dosage: 18MCG
     Route: 055
     Dates: start: 20030101
  2. SPIRIVA [Suspect]
     Indication: CHRONIC OBSTRUCTIVE PULMONARY DISEASE
  3. HOLISTIC STUFF [Concomitant]
  4. FEMHRT [Concomitant]
     Dates: end: 20081201
  5. XANAX [Concomitant]
  6. MELATONIN [Concomitant]
  7. TYLENOL [Concomitant]
  8. CALCIUM WITH  D [Concomitant]
  9. MAGNESIUM SULFATE [Concomitant]
  10. ACCUPRIL [Concomitant]
     Indication: HYPERTENSION
  11. ATENOLOL [Concomitant]
     Indication: HYPERTENSION

REACTIONS (7)
  - ALOPECIA [None]
  - ARTHRITIS [None]
  - CARDIAC FAILURE CONGESTIVE [None]
  - DYSPNOEA [None]
  - EXERCISE TOLERANCE DECREASED [None]
  - IRRITABLE BOWEL SYNDROME [None]
  - OEDEMA PERIPHERAL [None]
